FAERS Safety Report 8517085-3 (Version None)
Quarter: 2012Q2

REPORT INFORMATION
  Report Type: 
  Country: None (occurrence: None)
  Receive Date: 20120406
  Receipt Date: 20101005
  Transmission Date: 20120825
  Serious: Yes (Hospitalization)
  Sender: FDA-Public Use
  Company Number: PHHY2010US65379

PATIENT
  Age: 67 Year
  Sex: Male
  Weight: 101 kg

DRUGS (7)
  1. LIPITOR [Concomitant]
  2. PROSCAR [Concomitant]
  3. XANAX [Concomitant]
  4. TAMSULOSIN HCL [Concomitant]
  5. TASIGNA [Suspect]
     Indication: CHRONIC MYELOID LEUKAEMIA
     Dosage: 300 MG, BID, ORAL
     Route: 048
     Dates: start: 20100927, end: 20101001
  6. CORICIDIN [Concomitant]
  7. PAROXETINE HCL [Concomitant]

REACTIONS (3)
  - ABDOMINAL PAIN [None]
  - HICCUPS [None]
  - PANCREATITIS [None]
